FAERS Safety Report 23118253 (Version 2)
Quarter: 2023Q4

REPORT INFORMATION
  Report Type: Spontaneous
  Country: US (occurrence: US)
  Receive Date: 20231027
  Receipt Date: 20231103
  Transmission Date: 20240110
  Serious: No
  Sender: FDA-Public Use
  Company Number: US-AMGEN-USASP2023187644

PATIENT
  Age: 23 Year
  Sex: Male

DRUGS (1)
  1. BLINCYTO [Suspect]
     Active Substance: BLINATUMOMAB
     Indication: Minimal residual disease
     Dosage: ASSUMING 28 MCG DAY, CONTINUING (CONTINUOUS INFUSION)
     Route: 042

REACTIONS (2)
  - Product administered from unauthorised provider [Recovered/Resolved]
  - Product communication issue [Unknown]
